FAERS Safety Report 9136456 (Version 1)
Quarter: 2013Q1

REPORT INFORMATION
  Report Type: Spontaneous
  Country: US (occurrence: US)
  Receive Date: 20130304
  Receipt Date: 20130304
  Transmission Date: 20140127
  Serious: No
  Sender: FDA-Public Use
  Company Number: US-ABBOTT-12P-163-0956589-00

PATIENT
  Sex: Male

DRUGS (5)
  1. ANDROGEL 1% [Suspect]
     Indication: BLOOD TESTOSTERONE DECREASED
     Dosage: PACKETS 1 PER DAY
     Route: 061
     Dates: start: 2000, end: 201205
  2. TESTOSTERONE [Suspect]
     Indication: BLOOD TESTOSTERONE DECREASED
     Dates: start: 201205
  3. LIPITOR [Concomitant]
     Indication: BLOOD CHOLESTEROL INCREASED
  4. TOPROL [Concomitant]
     Indication: HYPERTENSION
  5. NEXIUM [Concomitant]
     Indication: GASTROOESOPHAGEAL REFLUX DISEASE

REACTIONS (7)
  - Paradoxical drug reaction [Not Recovered/Not Resolved]
  - Asthenia [Not Recovered/Not Resolved]
  - Hypersomnia [Not Recovered/Not Resolved]
  - Depressed mood [Not Recovered/Not Resolved]
  - Libido decreased [Not Recovered/Not Resolved]
  - Organic erectile dysfunction [Not Recovered/Not Resolved]
  - Blood testosterone increased [Not Recovered/Not Resolved]
